FAERS Safety Report 19065983 (Version 1)
Quarter: 2021Q1

REPORT INFORMATION
  Report Type: Report from Study
  Country: BR (occurrence: BR)
  Receive Date: 20210327
  Receipt Date: 20210327
  Transmission Date: 20210420
  Serious: Yes (Other)
  Sender: FDA-Public Use
  Company Number: BR-SHIRE-BR201915252

PATIENT
  Age: 27 Year
  Sex: Female
  Weight: 70 kg

DRUGS (2)
  1. HUMAN IMMUNOGLOBULIN; HYALURONIDASE [Suspect]
     Active Substance: HUMAN IMMUNOGLOBULIN G\HYALURONIDASE RECOMBINANT HUMAN
     Dosage: 150 MILLILITER, MONTHLY
     Route: 058
  2. HUMAN IMMUNOGLOBULIN; HYALURONIDASE [Suspect]
     Active Substance: HUMAN IMMUNOGLOBULIN G\HYALURONIDASE RECOMBINANT HUMAN
     Indication: PRIMARY IMMUNODEFICIENCY SYNDROME
     Dosage: 200 MILLILITER, MONTHLY
     Route: 058
     Dates: start: 20190329

REACTIONS (19)
  - Infection [Unknown]
  - Blood zinc decreased [Recovered/Resolved]
  - Abdominal pain [Recovered/Resolved]
  - Headache [Recovered/Resolved]
  - Malaise [Recovered/Resolved]
  - Disease recurrence [Recovered/Resolved]
  - Blood iron decreased [Recovered/Resolved]
  - Infusion site haematoma [Unknown]
  - Sepsis [Recovered/Resolved]
  - Somnolence [Recovered/Resolved]
  - Blood immunoglobulin G abnormal [Unknown]
  - Infusion site bruising [Unknown]
  - Pneumonia [Recovered/Resolved]
  - Vitamin D decreased [Recovered/Resolved]
  - Platelet count decreased [Recovered/Resolved]
  - Pain [Unknown]
  - Infusion site pain [Unknown]
  - Vomiting [Recovered/Resolved]
  - Abdominal distension [Recovered/Resolved]

NARRATIVE: CASE EVENT DATE: 20191205
